FAERS Safety Report 15719732 (Version 1)
Quarter: 2018Q4

REPORT INFORMATION
  Report Type: Spontaneous
  Country: US (occurrence: US)
  Receive Date: 20181213
  Receipt Date: 20181213
  Transmission Date: 20190205
  Serious: No
  Sender: FDA-Public Use
  Company Number: US-JNJFOC-20181142410

PATIENT
  Age: 21 Year
  Sex: Male

DRUGS (1)
  1. INVEGA SUSTENNA [Suspect]
     Active Substance: PALIPERIDONE PALMITATE
     Indication: SCHIZOPHRENIA
     Route: 042
     Dates: start: 201710

REACTIONS (4)
  - Extrapyramidal disorder [Unknown]
  - Off label use [Unknown]
  - Incorrect route of product administration [Unknown]
  - Eye movement disorder [Unknown]

NARRATIVE: CASE EVENT DATE: 201710
